FAERS Safety Report 10062730 (Version 1)
Quarter: 2014Q2

REPORT INFORMATION
  Report Type: Spontaneous
  Country: JP (occurrence: JP)
  Receive Date: 20140407
  Receipt Date: 20140407
  Transmission Date: 20141212
  Serious: Yes (Life-Threatening, Hospitalization)
  Sender: FDA-Public Use
  Company Number: JP-GLAXOSMITHKLINE-B0924255A

PATIENT
  Age: 78 Year
  Sex: Female

DRUGS (7)
  1. VALTREX [Suspect]
     Indication: HERPES ZOSTER
     Dosage: 1000MG THREE TIMES PER DAY
     Route: 048
     Dates: start: 20130914, end: 20130917
  2. WARFARIN [Concomitant]
     Route: 048
  3. HERBESSER [Concomitant]
     Route: 065
  4. TAKEPRON [Concomitant]
     Route: 065
  5. METGLUCO [Concomitant]
     Route: 048
  6. EQUA [Concomitant]
     Route: 048
  7. MAGMITT [Concomitant]
     Route: 048

REACTIONS (6)
  - Altered state of consciousness [Recovering/Resolving]
  - Renal impairment [Recovering/Resolving]
  - Decreased appetite [Unknown]
  - Oliguria [Unknown]
  - Renal tubular necrosis [Unknown]
  - Drug level increased [Unknown]
